FAERS Safety Report 5444560-0 (Version None)
Quarter: 2007Q3

REPORT INFORMATION
  Report Type: 
  Country: None (occurrence: None)
  Receive Date: 20070904
  Receipt Date: 20070904
  Transmission Date: 20080115
  Serious: Yes (Hospitalization)
  Sender: FDA-Public Use
  Company Number: None

PATIENT
  Sex: Female
  Weight: 60.9 kg

DRUGS (2)
  1. ERBITUX [Suspect]
     Indication: COLON CANCER
     Dosage: 500MG/M2  Q 2 WEEKS  IV DRIP
     Route: 041
     Dates: start: 20070725, end: 20070822
  2. IRINTOCAN [Suspect]
     Indication: COLON CANCER
     Dosage: 150MG/M2   Q 2 WEEKS  IV DRIP
     Route: 041
     Dates: start: 20070725, end: 20070822

REACTIONS (2)
  - GASTRITIS [None]
  - OESOPHAGITIS [None]
